APPROVED DRUG PRODUCT: GUANABENZ ACETATE
Active Ingredient: GUANABENZ ACETATE
Strength: EQ 8MG BASE
Dosage Form/Route: TABLET;ORAL
Application: A074517 | Product #002
Applicant: CHARTWELL RX SCIENCES LLC
Approved: Sep 30, 1998 | RLD: No | RS: No | Type: DISCN